FAERS Safety Report 7635755-6 (Version None)
Quarter: 2011Q3

REPORT INFORMATION
  Report Type: 
  Country: None (occurrence: None)
  Receive Date: 20110726
  Receipt Date: 20110725
  Transmission Date: 20111222
  Serious: Yes (Life-Threatening)
  Sender: FDA-Public Use
  Company Number: JP-PFIZER INC-2011167758

PATIENT
  Age: 58 Year
  Sex: Female

DRUGS (5)
  1. CALBLOCK [Concomitant]
     Indication: HYPERTENSION
     Dosage: UNK
  2. LYRICA [Suspect]
     Indication: HYPOAESTHESIA
     Dosage: 150 MG/DAY
     Route: 048
     Dates: start: 20110101, end: 20110701
  3. LENDORMIN [Suspect]
     Indication: HYPERTENSION
     Route: 048
  4. AMOXAPINE [Suspect]
     Route: 048
  5. TANATRIL [Concomitant]
     Indication: HYPERTENSION
     Dosage: UNK

REACTIONS (2)
  - INTENTIONAL OVERDOSE [None]
  - LOSS OF CONSCIOUSNESS [None]
